FAERS Safety Report 25320704 (Version 1)
Quarter: 2025Q2

REPORT INFORMATION
  Report Type: Spontaneous
  Country: US (occurrence: US)
  Receive Date: 20250515
  Receipt Date: 20250515
  Transmission Date: 20250717
  Serious: Yes (Life-Threatening)
  Sender: MALLINCKRODT
  Company Number: US-MALLINCKRODT-MNK202502814

PATIENT
  Age: 42 Year
  Sex: Female

DRUGS (1)
  1. TERLIPRESSIN [Suspect]
     Active Substance: TERLIPRESSIN
     Indication: Hepatorenal syndrome

REACTIONS (3)
  - Cardiogenic shock [Recovering/Resolving]
  - Respiratory failure [Unknown]
  - Stress cardiomyopathy [Recovered/Resolved]
